FAERS Safety Report 25029668 (Version 2)
Quarter: 2025Q1

REPORT INFORMATION
  Report Type: Report from Study
  Country: US (occurrence: US)
  Receive Date: 20250303
  Receipt Date: 20250312
  Transmission Date: 20250409
  Serious: Yes (Hospitalization)
  Sender: AMNEAL
  Company Number: US-AMNEAL PHARMACEUTICALS-2025-AMRX-00686

PATIENT
  Sex: Male

DRUGS (2)
  1. FYLNETRA [Suspect]
     Active Substance: PEGFILGRASTIM-PBBK
     Indication: Product used for unknown indication
     Route: 058
  2. FLUOROURACIL [Concomitant]
     Active Substance: FLUOROURACIL
     Indication: Product used for unknown indication
     Route: 065

REACTIONS (1)
  - Small intestinal obstruction [Unknown]
